FAERS Safety Report 9360890 (Version 6)
Quarter: 2013Q4

REPORT INFORMATION
  Report Type: Spontaneous
  Country: US (occurrence: US)
  Receive Date: 20130621
  Receipt Date: 20131106
  Transmission Date: 20140711
  Serious: Yes (Hospitalization, Other)
  Sender: FDA-Public Use
  Company Number: US-PFIZER INC-2013183373

PATIENT
  Age: 60 Year
  Sex: Male
  Weight: 73.47 kg

DRUGS (26)
  1. SUTENT [Suspect]
     Indication: METASTATIC RENAL CELL CARCINOMA
     Dosage: 50 MG, 1X/DAY
     Route: 048
     Dates: start: 201305, end: 201306
  2. SUTENT [Suspect]
     Dosage: 37.5 MG, 1X/DAY
     Dates: start: 201307, end: 20130717
  3. SUTENT [Suspect]
     Dosage: 50 MG, UNK
     Dates: start: 20130603
  4. SUTENT [Suspect]
     Dosage: 25 MG, UNK
     Dates: start: 201308, end: 20130906
  5. PERCOCET [Concomitant]
     Dosage: UNK
  6. PREVACID [Concomitant]
     Dosage: UNK
  7. ZOFRAN [Concomitant]
     Dosage: UNK
  8. PHENERGAN [Concomitant]
     Dosage: UNK
     Route: 061
  9. EFFEXOR [Concomitant]
     Dosage: UNK
  10. DETROL LA [Concomitant]
     Dosage: UNK
  11. CARAFATE [Concomitant]
     Dosage: UNK, SUSPENSION
  12. NACL [Concomitant]
     Dosage: (0.9 FLUSH 10 ML) AS NEEDED
     Route: 042
  13. LEVOFLOXACIN IN D5W [Concomitant]
     Dosage: 1 DF, 1X/DAY (750 MG/150 ML QBAG IVPB, EVERY TWENTY FOUR HOURS)
     Route: 042
  14. OXYCODONE-ACETAMIN [Concomitant]
     Dosage: 2 DF, (7.5-325 MG, 2 TABLETS EVERY 6 HOURS AS NEEDED)
     Route: 048
  15. SUCRALFATE [Concomitant]
     Dosage: 1 G, 3X/DAY (BEFORE MEALS AND BED)
     Route: 048
  16. TIZANIDINE [Concomitant]
     Dosage: 4 MG, (EVERY 8 HOURS AS NEEDED)
     Route: 048
  17. VENLAFAXINE [Concomitant]
     Dosage: 75 MG, 1X/DAY
     Route: 048
  18. TOLTERODINE TARTRATE [Concomitant]
     Dosage: 4 MG, 1X/DAY
     Route: 048
  19. ACETAMINOPHEN [Concomitant]
     Dosage: 1 DF, (1,000 MG/100 ML QBAG IVPB, EVERY 8 HOURS AS NEEDED)
     Route: 042
  20. CEFEPIME [Concomitant]
     Dosage: UNK, 2X/DAY, (2 GRAM QBAG IVPBD5W 100 ML IVPB, EVERY TWELVE HOURS)
     Route: 042
  21. PROMETHAZINE [Concomitant]
     Dosage: 1 DF, (25MG/1 ML IV PUSH, EVERY 6 HOURS AS NEEDED)
     Route: 042
  22. LIDO VISC/DIPHEN/MAALOX [Concomitant]
     Dosage: 10 ML, (1-2-3 10 ML ORAL; EVERY 4 HOURS AS NEEDED)
     Route: 048
  23. ENOXAPARIN SODIUM [Concomitant]
     Dosage: 1 DF, 1X/DAY (40 MG/0.4 ML)
     Route: 058
  24. ESOMEPRAZOLE MAGNESIUM [Concomitant]
     Dosage: 40 MG, 1X/DAY
     Route: 048
  25. VANCOMYCIN [Concomitant]
     Dosage: UNK, 2X/DAY (1,500 MG/15 ML QBAG IVPBNACL 0.9 250 ML IVPB; EVERY 12 HOURS)
  26. ONDANSETRON HYDROCHLORIDE [Concomitant]
     Dosage: 1 DF, (4 MG/2 ML IV PUSH; EVERY 4 HOURS AS NEEDED)
     Route: 042

REACTIONS (33)
  - Loss of consciousness [Recovering/Resolving]
  - Hypotension [Recovering/Resolving]
  - Dehydration [Recovering/Resolving]
  - Malaise [Unknown]
  - Pyrexia [Unknown]
  - Syncope [Unknown]
  - Mucosal inflammation [Unknown]
  - Confusional state [Unknown]
  - Chills [Unknown]
  - Nausea [Recovering/Resolving]
  - Vomiting [Recovering/Resolving]
  - Diarrhoea [Recovering/Resolving]
  - Pyrexia [Recovering/Resolving]
  - Chills [Recovering/Resolving]
  - Hyperhidrosis [Recovering/Resolving]
  - Erythema [Recovering/Resolving]
  - Pain in extremity [Recovering/Resolving]
  - Oral pain [Recovering/Resolving]
  - Glossodynia [Recovering/Resolving]
  - Musculoskeletal stiffness [Recovering/Resolving]
  - Abdominal discomfort [Recovering/Resolving]
  - Weight decreased [Recovering/Resolving]
  - Asthenia [Not Recovered/Not Resolved]
  - Fatigue [Unknown]
  - Dysgeusia [Unknown]
  - Pain [Unknown]
  - Hyperhidrosis [Not Recovered/Not Resolved]
  - White blood cell count decreased [Unknown]
  - Malaise [Unknown]
  - Febrile neutropenia [Unknown]
  - Scar [Unknown]
  - Disease progression [Unknown]
  - Metastatic renal cell carcinoma [Unknown]
